FAERS Safety Report 6717714-0 (Version None)
Quarter: 2010Q2

REPORT INFORMATION
  Report Type: 
  Country: None (occurrence: None)
  Receive Date: 20100503
  Receipt Date: 20100421
  Transmission Date: 20101027
  Serious: Yes (Hospitalization)
  Sender: FDA-Public Use
  Company Number: SPV1-2010-00788

PATIENT
  Age: 29 Year
  Sex: Male
  Weight: 79.4 kg

DRUGS (3)
  1. DAYTRANA [Suspect]
     Indication: ATTENTION DEFICIT/HYPERACTIVITY DISORDER
     Dosage: 15MG, 1X/DAY QD, TRANSDERMAL
     Route: 062
     Dates: start: 20090101
  2. SINGULAIR [Concomitant]
  3. XOPENEX         (LEVOSALBUTAMOL) INHALATION GAS [Concomitant]

REACTIONS (9)
  - APPLICATION SITE DISCOLOURATION [None]
  - APPLICATION SITE ERYTHEMA [None]
  - APPLICATION SITE PAIN [None]
  - APPLICATION SITE PRURITUS [None]
  - APPLICATION SITE SWELLING [None]
  - NEPHROLITHIASIS [None]
  - OFF LABEL USE [None]
  - PRODUCT ADHESION ISSUE [None]
  - PRODUCT QUALITY ISSUE [None]
